FAERS Safety Report 8260138-8 (Version None)
Quarter: 2012Q2

REPORT INFORMATION
  Report Type: 
  Country: None (occurrence: None)
  Receive Date: 20120404
  Receipt Date: 20120329
  Transmission Date: 20120825
  Serious: Yes (Hospitalization)
  Sender: FDA-Public Use
  Company Number: FR-FRI-1000029583

PATIENT
  Sex: Female

DRUGS (10)
  1. HALDOL [Concomitant]
     Dates: end: 20120112
  2. CITALOPRAM HYDROBROMIDE [Suspect]
     Indication: DEPRESSION
     Dosage: 20 MG / 0.5 ML
     Route: 042
     Dates: start: 20120117, end: 20120117
  3. ABILIFY [Suspect]
     Indication: SCHIZOTYPAL PERSONALITY DISORDER
     Dosage: 1 DF
     Route: 048
     Dates: start: 20111201, end: 20120112
  4. CITALOPRAM HYDROBROMIDE [Suspect]
     Dosage: 40 MG / 0.5 ML
     Route: 042
     Dates: start: 20120118, end: 20120118
  5. LEPTICUR [Concomitant]
     Dosage: 1 DF
     Route: 048
     Dates: end: 20120112
  6. RISPERDAL [Concomitant]
     Dates: end: 20120112
  7. LORAZEPAM [Concomitant]
     Dates: end: 20120112
  8. LOXAPINE HCL [Concomitant]
     Dates: end: 20120112
  9. VALDOXAN [Concomitant]
     Dosage: 1 DF
     Route: 048
     Dates: start: 20111201, end: 20120112
  10. TRIMEPRAZINE TARTRATE [Concomitant]
     Dates: end: 20120112

REACTIONS (2)
  - DRUG INTERACTION [None]
  - SEROTONIN SYNDROME [None]
